FAERS Safety Report 9589212 (Version 1)
Quarter: 2013Q4

REPORT INFORMATION
  Report Type: Spontaneous
  Country: US (occurrence: US)
  Receive Date: 20131003
  Receipt Date: 20131003
  Transmission Date: 20140711
  Serious: No
  Sender: FDA-Public Use
  Company Number: US-AMGEN-USASP2012069377

PATIENT
  Age: 57 Year
  Sex: Female
  Weight: 88.44 kg

DRUGS (6)
  1. ENBREL [Suspect]
     Indication: PSORIASIS
     Dosage: 50 MG, QWK
     Route: 058
  2. ATIVAN [Concomitant]
     Dosage: 1 MG, UNK
  3. LISINOPRIL [Concomitant]
     Dosage: 10 MG, UNK
  4. LEVOXYL [Concomitant]
     Dosage: 100 MUG, UNK
  5. PAXIL [Concomitant]
     Dosage: 40 MG, UNK
  6. MULTIVITAMIN                       /00097801/ [Concomitant]
     Dosage: UNK

REACTIONS (2)
  - Stress [Unknown]
  - Psoriasis [Unknown]
